FAERS Safety Report 8171272-5 (Version None)
Quarter: 2012Q1

REPORT INFORMATION
  Report Type: 
  Country: None (occurrence: None)
  Receive Date: 20120104
  Receipt Date: 20111118
  Transmission Date: 20120608
  Serious: No
  Sender: FDA-Public Use
  Company Number: 2011HGS-002840

PATIENT
  Age: 63 Year
  Sex: Female
  Weight: 90.7194 kg

DRUGS (12)
  1. VITAMIN B(VITAMIN B [Concomitant]
  2. MOBIC [Concomitant]
  3. PREDNISONE [Concomitant]
  4. CRESTOR [Concomitant]
  5. EXAPRO (ESCITALOPRAM OXALATE) (ESCITALOPRAM OXALATE) [Concomitant]
  6. RESTASIS (CICLOSPORIN) (CICLOSPORIN) [Concomitant]
  7. BIOTENE (GLUCOSE OXIDASE) (GLUCOSE OXIDASE) [Concomitant]
  8. BENLYSTA [Suspect]
     Dosage: 1 IN 28 D, INTRAVENOUS DRIP
     Route: 041
     Dates: start: 20110816
  9. ACIPHEX(RABEPRAZOLE SODIUM) (RABEPRAZOLE SODIUM) [Concomitant]
  10. ACYCLOVIR(ACICLOVIR) (ACICLOVIR) [Concomitant]
  11. ALLOPURINOL [Concomitant]
  12. NEURONTIN [Concomitant]

REACTIONS (3)
  - HEADACHE [None]
  - NAUSEA [None]
  - DIARRHOEA [None]
